FAERS Safety Report 10203887 (Version 2)
Quarter: 2019Q2

REPORT INFORMATION
  Report Type: Report from Study
  Country: US (occurrence: US)
  Receive Date: 20140529
  Receipt Date: 20190408
  Transmission Date: 20190711
  Serious: Yes (Other)
  Sender: FDA-Public Use
  Company Number: US-SA-2014SA065836

PATIENT
  Age: 58 Year
  Sex: Male

DRUGS (3)
  1. INSULIN GLARGINE [Suspect]
     Active Substance: INSULIN GLARGINE
     Indication: TYPE 2 DIABETES MELLITUS
     Dosage: 46 U, QD
     Route: 058
     Dates: start: 2014
  2. INSULIN LISPRO [Suspect]
     Active Substance: INSULIN LISPRO
     Dosage: UNK UNK,UNK
     Route: 065
  3. INSULIN GLARGINE [Suspect]
     Active Substance: INSULIN GLARGINE
     Dosage: 35 U, HS
     Route: 058

REACTIONS (7)
  - Muscle spasms [Unknown]
  - Inability to afford medication [Unknown]
  - Atrioventricular block [Not Recovered/Not Resolved]
  - Expired product administered [Unknown]
  - Glycosylated haemoglobin increased [Not Recovered/Not Resolved]
  - Weight decreased [Unknown]
  - Product storage error [Unknown]
